FAERS Safety Report 9302935 (Version 1)
Quarter: 2013Q2

REPORT INFORMATION
  Report Type: Spontaneous
  Country: US (occurrence: US)
  Receive Date: 20130522
  Receipt Date: 20130522
  Transmission Date: 20140414
  Serious: Yes (Disabling)
  Sender: FDA-Public Use
  Company Number: US-GENZYME-FABR-1003268

PATIENT
  Sex: Male
  Weight: 125.19 kg

DRUGS (2)
  1. FABRAZYME [Suspect]
     Indication: FABRY^S DISEASE
     Dosage: 0.9 MG/KG, Q2W
     Route: 042
     Dates: start: 20050420
  2. FABRAZYME [Suspect]
     Dosage: 1.9 MG/KG, Q2W
     Route: 042

REACTIONS (2)
  - Renal impairment [Not Recovered/Not Resolved]
  - Cardiac disorder [Not Recovered/Not Resolved]
